FAERS Safety Report 22180952 (Version 2)
Quarter: 2023Q2

REPORT INFORMATION
  Report Type: Report from Study
  Country: US (occurrence: US)
  Receive Date: 20230406
  Receipt Date: 20230414
  Transmission Date: 20230722
  Serious: No
  Sender: FDA-Public Use
  Company Number: US-BIOVITRUM-2023-US-007166

PATIENT
  Age: 8 Year
  Sex: Male

DRUGS (5)
  1. KINERET [Suspect]
     Active Substance: ANAKINRA
     Indication: Rheumatoid arthritis
     Dosage: DAILY
     Route: 058
     Dates: start: 20230308
  2. KINERET [Suspect]
     Active Substance: ANAKINRA
     Indication: Partial seizures
  3. KINERET [Suspect]
     Active Substance: ANAKINRA
     Indication: Epilepsy
  4. KINERET [Suspect]
     Active Substance: ANAKINRA
     Indication: Focal dyscognitive seizures
  5. KINERET [Suspect]
     Active Substance: ANAKINRA
     Indication: Status epilepticus

REACTIONS (3)
  - Headache [Unknown]
  - Fatigue [Unknown]
  - Lacrimation increased [Unknown]
